FAERS Safety Report 7240620-2 (Version None)
Quarter: 2011Q1

REPORT INFORMATION
  Report Type: 
  Country: None (occurrence: None)
  Receive Date: 20110118
  Receipt Date: 20110104
  Transmission Date: 20110831
  Serious: Yes (Hospitalization)
  Sender: FDA-Public Use
  Company Number: B0693245A

PATIENT
  Age: 43 Year
  Sex: Female
  Weight: 74.8435 kg

DRUGS (8)
  1. FENTANYL [Concomitant]
  2. DEXAMETHASONE [Concomitant]
  3. DESFLURANE [Concomitant]
  4. LIGNOCAINE HYDROCHLORIDE [Concomitant]
  5. VALSARTAN [Concomitant]
  6. PROPOFOL [Concomitant]
  7. SUXAMETHONIUM [Concomitant]
  8. ONDANSETRON HYDROCHLORIDE [Suspect]
     Indication: PROPHYLAXIS
     Dosage: INTRAVENOUS
     Route: 042

REACTIONS (6)
  - HAEMOGLOBIN DECREASED [None]
  - HEADACHE [None]
  - VENTRICULAR TACHYCARDIA [None]
  - MALAISE [None]
  - ELECTROCARDIOGRAM QT PROLONGED [None]
  - CORONARY ARTERY DISEASE [None]
